FAERS Safety Report 7713690-2 (Version None)
Quarter: 2011Q3

REPORT INFORMATION
  Report Type: 
  Country: None (occurrence: None)
  Receive Date: 20110826
  Receipt Date: 20110825
  Transmission Date: 20111222
  Serious: Yes (Life-Threatening, Other)
  Sender: FDA-Public Use
  Company Number: JP-B.I. PHARMACEUTICALS,INC./RIDGEFIELD-2011-BP-20694NB

PATIENT
  Age: 77 Year
  Sex: Male
  Weight: 58 kg

DRUGS (6)
  1. LOPERAMIDE HCL [Concomitant]
     Dosage: 2 DF DAILY
     Route: 065
  2. LASIX [Concomitant]
     Dosage: 20 MG
     Route: 065
  3. AMLODIN OD [Concomitant]
     Dosage: 2.5 MG
     Route: 065
  4. BIOFERMIN [Concomitant]
     Dosage: 3 G
     Route: 065
  5. BISOPROLOL FUMARATE [Concomitant]
     Dosage: 2.5 MG
     Route: 065
  6. PRADAXA [Suspect]
     Indication: DEEP VEIN THROMBOSIS
     Dosage: 300 MG
     Route: 048
     Dates: start: 20110401, end: 20110619

REACTIONS (5)
  - HAEMATEMESIS [None]
  - OXYGEN SATURATION DECREASED [None]
  - MELAENA [None]
  - GASTROINTESTINAL ULCER [None]
  - BLOOD PRESSURE DECREASED [None]
